FAERS Safety Report 12781099 (Version 1)
Quarter: 2016Q3

REPORT INFORMATION
  Report Type: Spontaneous
  Country: BR (occurrence: BR)
  Receive Date: 20160926
  Receipt Date: 20160926
  Transmission Date: 20161109
  Serious: Yes (Hospitalization, Other)
  Sender: FDA-Public Use
  Company Number: BR-MYLANLABS-2016M1041142

PATIENT

DRUGS (1)
  1. CALCITONIN SALMON MYLAN [Suspect]
     Active Substance: CALCITONIN SALMON
     Indication: HYPOKALAEMIA
     Dosage: UNK, QD
     Route: 045
     Dates: start: 20160831

REACTIONS (3)
  - Hypokalaemia [Recovered/Resolved]
  - Blood calcium increased [Unknown]
  - Off label use [Unknown]

NARRATIVE: CASE EVENT DATE: 20160912
